FAERS Safety Report 14168707 (Version 5)
Quarter: 2018Q1

REPORT INFORMATION
  Report Type: Report from Study
  Country: None (occurrence: US)
  Receive Date: 20171107
  Receipt Date: 20180308
  Transmission Date: 20180508
  Serious: Yes (Hospitalization)
  Sender: FDA-Public Use
  Company Number: US-BAUSCH-BL-2017-030817

PATIENT
  Sex: Female
  Weight: 79.45 kg

DRUGS (3)
  1. XIFAXAN [Suspect]
     Active Substance: RIFAXIMIN
     Dosage: DOSE REDUCED (LAST COUPLE OF WEEKS (FEB/2018)
     Route: 048
     Dates: start: 201802
  2. ANUSOL NOS [Suspect]
     Active Substance: BALSAM PERU\BENZYL BENZOATE\BISMUTH HYDROXIDE\BISMUTH SUBGALLATE\HYDROCORTISONE ACETATE\ZINC OXIDE
     Indication: INFLAMMATION
     Dosage: WHEN NECESSARY
     Route: 065
  3. XIFAXAN [Suspect]
     Active Substance: RIFAXIMIN
     Indication: GASTROINTESTINAL INFLAMMATION
     Route: 048
     Dates: start: 2013

REACTIONS (6)
  - Influenza [Recovering/Resolving]
  - Diarrhoea [Not Recovered/Not Resolved]
  - Ovarian cyst [Recovered/Resolved]
  - Intentional product use issue [Unknown]
  - Off label use [Not Recovered/Not Resolved]
  - Inability to afford medication [Unknown]

NARRATIVE: CASE EVENT DATE: 2013
